FAERS Safety Report 9266575 (Version 1)
Quarter: 2013Q2

REPORT INFORMATION
  Report Type: Spontaneous
  Country: FR (occurrence: FR)
  Receive Date: 20130502
  Receipt Date: 20130502
  Transmission Date: 20140414
  Serious: Yes (Death, Hospitalization)
  Sender: FDA-Public Use
  Company Number: PHHY2013FR003141

PATIENT
  Age: 51 Year
  Sex: Male
  Weight: 49 kg

DRUGS (8)
  1. AFINITOR [Suspect]
     Indication: PANCREATIC NEUROENDOCRINE TUMOUR
     Dosage: 10 MG, QD
     Dates: start: 20121124, end: 20121130
  2. PLAVICTONAL [Concomitant]
     Indication: ARTERIAL DISORDER
     Dosage: 75 MG, QD
     Dates: start: 2011
  3. TAHOR [Concomitant]
     Indication: ARTERIAL DISORDER
     Dosage: 10 MG, QD
     Route: 048
     Dates: start: 2010
  4. CARDENSIEL [Concomitant]
     Indication: MYOCARDIAL INFARCTION
     Dosage: 7.5 MG, QD
     Route: 048
     Dates: start: 2010
  5. SOMATULINE [Concomitant]
     Indication: GLUCAGONOMA
     Dosage: 120 MG
     Route: 058
  6. MOPRAL [Concomitant]
     Dosage: 20 MG, QD
     Dates: start: 2010
  7. PARACETAMOL [Concomitant]
     Indication: PAIN
     Route: 048
     Dates: start: 2012
  8. ZOMETA [Concomitant]
     Indication: METASTASES TO BONE
     Route: 042
     Dates: start: 2012

REACTIONS (8)
  - Death [Fatal]
  - Nervous system disorder [Unknown]
  - Clonus [Unknown]
  - Hypotension [Unknown]
  - Renal failure [Unknown]
  - Dehydration [Unknown]
  - Urine output decreased [Unknown]
  - Encephalopathy [Unknown]
